FAERS Safety Report 10029577 (Version 1)
Quarter: 2014Q1

REPORT INFORMATION
  Report Type: Spontaneous
  Country: US (occurrence: None)
  Receive Date: 20140320
  Receipt Date: 20140320
  Transmission Date: 20141002
  Serious: Yes (Other)
  Sender: FDA-Public Use
  Company Number: None

PATIENT
  Age: 35 Year
  Sex: Female
  Weight: 98.88 kg

DRUGS (1)
  1. TIZANIDINE 4 MG DR. REDDY^S LABS [Suspect]
     Indication: MUSCLE SPASMS
     Dosage: 1 PILL  THREE TIMES DAILY TAKEN BY MOUTH
     Route: 048
     Dates: start: 20140307, end: 20140313

REACTIONS (3)
  - Hallucination [None]
  - Depression [None]
  - Anxiety [None]
